FAERS Safety Report 17289839 (Version 1)
Quarter: 2020Q1

REPORT INFORMATION
  Report Type: Spontaneous
  Country: FR (occurrence: FR)
  Receive Date: 20200120
  Receipt Date: 20200120
  Transmission Date: 20200409
  Serious: Yes (Hospitalization, Other)
  Sender: FDA-Public Use
  Company Number: FR-MYLANLABS-2019M1120312

PATIENT
  Age: 65 Year
  Sex: Male

DRUGS (11)
  1. IBRUTINIB [Interacting]
     Active Substance: IBRUTINIB
     Indication: CHRONIC LYMPHOCYTIC LEUKAEMIA
     Dosage: 420 MILLIGRAM, QD
     Route: 065
  2. PREDNISONE. [Suspect]
     Active Substance: PREDNISONE
     Dosage: 1.5 MG/KG DAILY
     Route: 065
  3. IBRUTINIB [Interacting]
     Active Substance: IBRUTINIB
     Dosage: 420 MILLIGRAM, QD
     Route: 065
  4. IBRUTINIB [Interacting]
     Active Substance: IBRUTINIB
     Dosage: 140 MILLIGRAM, QD
     Route: 065
  5. VORICONAZOLE. [Interacting]
     Active Substance: VORICONAZOLE
     Indication: CHRONIC LYMPHOCYTIC LEUKAEMIA
  6. VORICONAZOLE. [Interacting]
     Active Substance: VORICONAZOLE
     Indication: ASPERGILLUS INFECTION
     Dosage: UNK
     Route: 048
  7. PREDNISOLONE                       /00016202/ [Suspect]
     Active Substance: PREDNISOLONE
     Indication: CHRONIC LYMPHOCYTIC LEUKAEMIA
     Dosage: 1.5 MG/KG DAILY
     Route: 065
  8. PREDNISOLONE                       /00016202/ [Suspect]
     Active Substance: PREDNISOLONE
     Dosage: 20 MILLIGRAM, QD (20 MG, DAILY)
     Route: 065
  9. PREDNISONE. [Suspect]
     Active Substance: PREDNISONE
     Indication: CHRONIC LYMPHOCYTIC LEUKAEMIA
     Dosage: 20 MG, DAILY
     Route: 065
  10. RITUXIMAB. [Suspect]
     Active Substance: RITUXIMAB
     Indication: CHRONIC LYMPHOCYTIC LEUKAEMIA
     Dosage: 500 MG/M2, EVERY TWO WEEKS
     Route: 065
  11. VORICONAZOLE. [Interacting]
     Active Substance: VORICONAZOLE
     Indication: BRONCHOPULMONARY ASPERGILLOSIS

REACTIONS (14)
  - Central nervous system fungal infection [Recovered/Resolved]
  - Infectious pleural effusion [Recovered/Resolved]
  - Pulmonary haemorrhage [Recovered/Resolved with Sequelae]
  - Cough [Recovered/Resolved]
  - Aspergillus infection [Recovered/Resolved]
  - Pulmonary mass [Recovered/Resolved]
  - Dizziness [Recovered/Resolved]
  - Drug level increased [Recovered/Resolved]
  - Hemiparesis [Recovered/Resolved]
  - Bronchopulmonary aspergillosis [Recovered/Resolved]
  - Drug interaction [Recovered/Resolved]
  - Balance disorder [Recovered/Resolved]
  - Dyspnoea [Recovered/Resolved]
  - Cerebral aspergillosis [Recovered/Resolved]
